FAERS Safety Report 8331214 (Version 22)
Quarter: 2013Q2

REPORT INFORMATION
  Report Type: Report from Study
  Country: DE (occurrence: DE)
  Receive Date: 20120111
  Receipt Date: 20130516
  Transmission Date: 20140414
  Serious: Yes (Death, Life-Threatening, Hospitalization)
  Sender: FDA-Public Use
  Company Number: DE-ROCHE-1028829

PATIENT
  Age: 67 Year
  Sex: Female
  Weight: 69 kg

DRUGS (13)
  1. VEMURAFENIB [Suspect]
     Indication: MALIGNANT MELANOMA
     Dosage: DOSE REDUCED, TEMPORARILY INTERRUPTED
     Route: 048
     Dates: start: 20111021
  2. VEMURAFENIB [Suspect]
     Dosage: LAST DOSE PROIR TO SAE WAS ON 4/JAN/2012
     Route: 048
     Dates: start: 20111121, end: 20111220
  3. VEMURAFENIB [Suspect]
     Route: 048
     Dates: start: 20111220, end: 20120104
  4. RAMIPRIL [Concomitant]
     Dosage: DAILY DOSE: 5/25 MG
     Route: 065
     Dates: start: 1983
  5. CLOPIDOGREL [Concomitant]
     Route: 065
     Dates: start: 200707
  6. SIMVASTATIN [Concomitant]
     Route: 065
     Dates: start: 2000
  7. DUOTRAV [Concomitant]
     Dosage: 1 DRP DAILY
     Route: 065
     Dates: start: 2003
  8. ECURAL [Concomitant]
     Dosage: ECURAL OINTMENT, TOTAL DAILY DOSE: 1 APPLICATION
     Route: 065
     Dates: start: 20111209, end: 20120109
  9. DERMOXIN (GERMANY) [Concomitant]
     Dosage: TOTAL DAILY DOSE: 1 APPLICATION
     Route: 065
     Dates: start: 20111209, end: 20120105
  10. MOBILAT [Concomitant]
     Route: 065
     Dates: start: 20111213, end: 20120105
  11. DTIC [Concomitant]
  12. IPILIMUMAB [Concomitant]
  13. INTERFERON ALFA-2A [Concomitant]

REACTIONS (5)
  - Multi-organ disorder [Fatal]
  - Diabetic ketoacidosis [Recovering/Resolving]
  - Pneumonia [Not Recovered/Not Resolved]
  - Acute myocardial infarction [Not Recovered/Not Resolved]
  - Escherichia sepsis [Not Recovered/Not Resolved]
